FAERS Safety Report 5219574-6 (Version None)
Quarter: 2007Q1

REPORT INFORMATION
  Report Type: 
  Country: None (occurrence: None)
  Receive Date: 20061201
  Receipt Date: 20060705
  Transmission Date: 20070707
  Serious: No
  Sender: FDA-Public Use
  Company Number: 2006PV016996

PATIENT
  Age: 54 Year
  Sex: Female
  Weight: 73.9363 kg

DRUGS (6)
  1. BYETTA [Suspect]
     Indication: DIABETES MELLITUS NON-INSULIN-DEPENDENT
     Dosage: 10; 5 MCG; BID; SC
     Route: 058
     Dates: start: 20060515, end: 20060628
  2. BYETTA [Suspect]
     Indication: DIABETES MELLITUS NON-INSULIN-DEPENDENT
     Dosage: 10; 5 MCG; BID; SC
     Route: 058
     Dates: start: 20060629
  3. GLUCOPHAGE [Concomitant]
  4. AMARYL [Concomitant]
  5. REGLAN [Concomitant]
  6. NEXIUM [Concomitant]

REACTIONS (3)
  - ABDOMINAL DISCOMFORT [None]
  - ABDOMINAL DISTENSION [None]
  - DYSPNOEA [None]
